FAERS Safety Report 7458225-7 (Version None)
Quarter: 2011Q2

REPORT INFORMATION
  Report Type: 
  Country: None (occurrence: None)
  Receive Date: 20110502
  Receipt Date: 20110502
  Transmission Date: 20111010
  Serious: Yes (Other)
  Sender: FDA-Public Use
  Company Number: None

PATIENT
  Age: 3 Year
  Sex: Male
  Weight: 13.6079 kg

DRUGS (1)
  1. CEFDINIR [Suspect]
     Indication: OTITIS MEDIA
     Dosage: 3.5 ML QD PO
     Route: 048
     Dates: start: 20110423, end: 20110428

REACTIONS (4)
  - SCREAMING [None]
  - CRYING [None]
  - EAR PAIN [None]
  - PRODUCT SUBSTITUTION ISSUE [None]
